FAERS Safety Report 4764311-2 (Version None)
Quarter: 2005Q3

REPORT INFORMATION
  Report Type: 
  Country: None (occurrence: None)
  Receive Date: 20050907
  Receipt Date: 20050907
  Transmission Date: 20060218
  Serious: Yes (Other)
  Sender: FDA-Public Use
  Company Number: None

PATIENT
  Sex: Male
  Weight: 129.2752 kg

DRUGS (21)
  1. DICLOFENAC SODIUM [Suspect]
     Indication: ARTHRITIS
     Dosage: 75 MG TWO TIMES A DAY
     Dates: start: 20050427, end: 20050501
  2. DOXAZOSIN [Concomitant]
  3. FLUOXETINE [Concomitant]
  4. AMITRIPTYLINE HCL [Concomitant]
  5. HYDROCODONE BITARTRATE [Concomitant]
  6. METFORMIN [Concomitant]
  7. CARISOPRODOL [Concomitant]
  8. NEXIUM [Concomitant]
  9. ALTACE [Concomitant]
  10. PRAVACHOL [Concomitant]
  11. ASPIRIN [Concomitant]
  12. MULTIVITAMIN WITH MINERALS LIQUID [Concomitant]
  13. ASCORBIC ACID [Concomitant]
  14. FLAXSEED OIL [Concomitant]
  15. XANGO MANGOSTEEN JUICE [Concomitant]
  16. VITAMIN B-12 [Concomitant]
  17. DHEA [Concomitant]
  18. CO-Q10 [Concomitant]
  19. CHROMIUM PICOLINATE [Concomitant]
  20. VITAMIN E [Concomitant]
  21. CALCIUM/MAGNESIUM LIQUID [Concomitant]

REACTIONS (4)
  - ABDOMINAL PAIN [None]
  - ASTHENIA [None]
  - DIARRHOEA [None]
  - INFLUENZA [None]
